FAERS Safety Report 6614367-7 (Version None)
Quarter: 2010Q1

REPORT INFORMATION
  Report Type: 
  Country: None (occurrence: None)
  Receive Date: 20100303
  Receipt Date: 20100303
  Transmission Date: 20100710
  Serious: Yes (Hospitalization)
  Sender: FDA-Public Use
  Company Number: None

PATIENT
  Age: 89 Year
  Sex: Female
  Weight: 30.8446 kg

DRUGS (1)
  1. AMITIZA [Suspect]
     Indication: CONSTIPATION
     Dosage: 24 MCG BID PO
     Route: 048
     Dates: start: 20100115, end: 20100226

REACTIONS (1)
  - CHEST PAIN [None]
